FAERS Safety Report 14603115 (Version 2)
Quarter: 2018Q2

REPORT INFORMATION
  Report Type: Report from Study
  Country: None (occurrence: US)
  Receive Date: 20180306
  Receipt Date: 20180427
  Transmission Date: 20180711
  Serious: Yes (Other)
  Sender: FDA-Public Use
  Company Number: US-ABBVIE-17K-163-2004333-00

PATIENT
  Sex: Male

DRUGS (2)
  1. HUMIRA [Suspect]
     Active Substance: ADALIMUMAB
     Indication: PSORIASIS
     Route: 058
     Dates: start: 20170613
  2. HUMIRA [Suspect]
     Active Substance: ADALIMUMAB
     Indication: PSORIASIS
     Dosage: DAY 1
     Route: 058
     Dates: start: 20170606, end: 20170606

REACTIONS (22)
  - Dry mouth [Unknown]
  - Pruritus [Recovered/Resolved]
  - Ear infection [Recovered/Resolved]
  - Drug ineffective [Unknown]
  - Carpal tunnel syndrome [Recovering/Resolving]
  - General physical condition abnormal [Not Recovered/Not Resolved]
  - Skin irritation [Recovering/Resolving]
  - Nephrolithiasis [Unknown]
  - Injection site bruising [Not Recovered/Not Resolved]
  - Pain of skin [Recovered/Resolved]
  - Injection site bruising [Unknown]
  - Skin burning sensation [Not Recovered/Not Resolved]
  - Psoriasis [Not Recovered/Not Resolved]
  - Nausea [Unknown]
  - Psoriasis [Not Recovered/Not Resolved]
  - Haemorrhage [Not Recovered/Not Resolved]
  - Quality of life decreased [Not Recovered/Not Resolved]
  - Hyperhidrosis [Not Recovered/Not Resolved]
  - Emotional distress [Not Recovered/Not Resolved]
  - Oropharyngeal pain [Recovered/Resolved]
  - Vomiting [Unknown]
  - Retching [Unknown]

NARRATIVE: CASE EVENT DATE: 2017
